FAERS Safety Report 23255797 (Version 2)
Quarter: 2023Q4

REPORT INFORMATION
  Report Type: Spontaneous
  Country: US (occurrence: US)
  Receive Date: 20231204
  Receipt Date: 20231208
  Transmission Date: 20240109
  Serious: Yes (Other)
  Sender: FDA-Public Use
  Company Number: US-ABBVIE-5521355

PATIENT
  Sex: Female
  Weight: 68.038 kg

DRUGS (5)
  1. REFRESH OPTIVE ADVANCED [Suspect]
     Active Substance: CARBOXYMETHYLCELLULOSE SODIUM\GLYCERIN\POLYSORBATE 80
     Indication: Dry eye
     Dosage: PRESERVATIVE-FREE
     Route: 047
     Dates: start: 202310
  2. HYDROCHLOROTHIAZIDE [Concomitant]
     Active Substance: HYDROCHLOROTHIAZIDE
     Indication: Hypertension
  3. LOSARTAN [Concomitant]
     Active Substance: LOSARTAN
     Indication: Hypertension
  4. REFRESH OPTIVE MEGA-3 [Suspect]
     Active Substance: CARBOXYMETHYLCELLULOSE SODIUM\GLYCERIN\POLYSORBATE 80
     Indication: Dry eye
     Dosage: GLYCERIN 10MG/ML;POLY 80 5MG/ML;CMC 5MG/ML SOL UNIT DOSE
     Route: 047
     Dates: start: 202210, end: 202311
  5. REFRESH OPTIVE MEGA-3 [Suspect]
     Active Substance: CARBOXYMETHYLCELLULOSE SODIUM\GLYCERIN\POLYSORBATE 80
     Indication: Dry eye
     Dosage: GLYCERIN 10MG/ML;POLY 80 5MG/ML;CMC 5MG/ML SOL UNIT DOSE
     Route: 047

REACTIONS (12)
  - Cataract [Unknown]
  - Eye pain [Recovered/Resolved]
  - Therapeutic product effect incomplete [Not Recovered/Not Resolved]
  - Eye swelling [Recovered/Resolved]
  - Skin exfoliation [Recovering/Resolving]
  - Hypersensitivity [Recovered/Resolved]
  - Dry eye [Unknown]
  - Pruritus [Recovered/Resolved]
  - Eyelid exfoliation [Recovering/Resolving]
  - Pruritus allergic [Not Recovered/Not Resolved]
  - Skin fissures [Recovering/Resolving]
  - Therapeutic product effect incomplete [Unknown]

NARRATIVE: CASE EVENT DATE: 20230101
